FAERS Safety Report 4272456-9 (Version None)
Quarter: 2004Q1

REPORT INFORMATION
  Report Type: 
  Country: None (occurrence: None)
  Receive Date: 20040115
  Receipt Date: 20020909
  Transmission Date: 20041129
  Serious: Yes (Death, Hospitalization)
  Sender: FDA-Public Use
  Company Number: WAES 0209USA01335

PATIENT
  Age: 74 Year
  Sex: Male
  Weight: 68 kg

DRUGS (18)
  1. DARVOCET-N 100 [Concomitant]
  2. ASPIRIN [Concomitant]
  3. PLAVIX [Concomitant]
     Dates: start: 19990101
  4. VASOTEC [Concomitant]
     Route: 048
     Dates: start: 20000101
  5. IMDUR [Concomitant]
     Dates: start: 19990101, end: 20000701
  6. SYNTHROID [Concomitant]
     Indication: HYPOTHYROIDISM
     Dates: start: 19981201, end: 19990101
  7. SYNTHROID [Concomitant]
     Dates: start: 19990101, end: 19991101
  8. SYNTHROID [Concomitant]
     Dates: start: 20000701
  9. SYNTHROID [Concomitant]
     Dates: start: 20000101, end: 20000401
  10. LEVOTHROID [Concomitant]
     Dates: start: 19991101, end: 20000701
  11. ZESTRIL [Concomitant]
  12. NITROGLYCERIN [Concomitant]
     Dates: start: 19991101
  13. VIOXX [Suspect]
     Indication: CHEST PAIN
     Route: 048
     Dates: start: 20000106, end: 20000101
  14. VIOXX [Suspect]
     Route: 048
     Dates: start: 20000101, end: 20000909
  15. VIOXX [Suspect]
     Route: 048
     Dates: start: 20000106, end: 20000101
  16. VIOXX [Suspect]
     Route: 048
     Dates: start: 20000101, end: 20000909
  17. MYLICON [Concomitant]
     Indication: FLATULENCE
     Route: 048
     Dates: start: 20000101
  18. ZOCOR [Concomitant]
     Route: 048
     Dates: start: 19990101

REACTIONS (10)
  - ACCIDENTAL OVERDOSE [None]
  - ACUTE MYOCARDIAL INFARCTION [None]
  - ANGINA PECTORIS [None]
  - CARDIAC FAILURE CONGESTIVE [None]
  - CARDIOGENIC SHOCK [None]
  - CAROTID ARTERY STENOSIS [None]
  - CHRONIC OBSTRUCTIVE AIRWAYS DISEASE [None]
  - HEART RATE IRREGULAR [None]
  - PALPITATIONS [None]
  - POSTOPERATIVE INFECTION [None]
